FAERS Safety Report 6579514-4 (Version None)
Quarter: 2010Q1

REPORT INFORMATION
  Report Type: 
  Country: None (occurrence: None)
  Receive Date: 20100212
  Receipt Date: 20100208
  Transmission Date: 20100710
  Serious: Yes (Hospitalization)
  Sender: FDA-Public Use
  Company Number: JP-BAYER-200914838BYL

PATIENT
  Age: 79 Year
  Sex: Male
  Weight: 50 kg

DRUGS (3)
  1. NEXAVAR [Suspect]
     Indication: HEPATIC NEOPLASM MALIGNANT
     Dosage: TOTAL DAILY DOSE: 400 MG  UNIT DOSE: 200 MG
     Route: 048
     Dates: start: 20090729, end: 20090903
  2. ADALAT CC [Concomitant]
     Dosage: BEFORE NEXAVAR ADMINISTRATION
     Route: 048
  3. OLMETEC [Concomitant]
     Dosage: BEFORE NEXAVAR ADMINISTRATION
     Route: 048

REACTIONS (2)
  - DECREASED APPETITE [None]
  - MALAISE [None]
